FAERS Safety Report 13653516 (Version 1)
Quarter: 2017Q2

REPORT INFORMATION
  Report Type: Spontaneous
  Country: US (occurrence: US)
  Receive Date: 20170614
  Receipt Date: 20170614
  Transmission Date: 20170830
  Serious: Yes (Hospitalization)
  Sender: FDA-Public Use
  Company Number: US-ROCHE-1488670

PATIENT
  Sex: Male

DRUGS (7)
  1. OXYCODONE [Concomitant]
     Active Substance: OXYCODONE
  2. FLOMAX [Concomitant]
     Active Substance: TAMSULOSIN HYDROCHLORIDE
  3. XELODA [Suspect]
     Active Substance: CAPECITABINE
     Indication: RECTAL CANCER
     Dosage: 14 DAYS ON, 7 DAYS OFF
     Route: 048
     Dates: start: 20140930
  4. MS CONTIN [Concomitant]
     Active Substance: MORPHINE SULFATE
  5. SSD CREAM [Concomitant]
     Active Substance: SILVER SULFADIAZINE
     Route: 065
  6. COMPAZINE [Concomitant]
     Active Substance: PROCHLORPERAZINE MALEATE
  7. DOCQLACE [Concomitant]
     Active Substance: DOCUSATE SODIUM

REACTIONS (4)
  - Diarrhoea [Unknown]
  - Fatigue [Unknown]
  - Abscess [Unknown]
  - Nausea [Unknown]
